FAERS Safety Report 9584582 (Version 1)
Quarter: 2013Q4

REPORT INFORMATION
  Report Type: Spontaneous
  Country: US (occurrence: US)
  Receive Date: 20131002
  Receipt Date: 20131002
  Transmission Date: 20140711
  Serious: No
  Sender: FDA-Public Use
  Company Number: US-AMGEN-USASP2013054236

PATIENT
  Age: 59 Year
  Sex: Female
  Weight: 88.89 kg

DRUGS (8)
  1. ENBREL [Suspect]
     Indication: PRODUCT USED FOR UNKNOWN INDICATION
     Dosage: 50 MG, QWK
     Route: 058
  2. HYDROCHLOORTHIAZIDE [Suspect]
     Indication: PRODUCT USED FOR UNKNOWN INDICATION
     Dosage: UNK
     Route: 065
  3. DOVONEX [Concomitant]
     Dosage: 0.005 %, UNK
  4. SIMVASTIN [Concomitant]
     Dosage: 20 MG, UNK
  5. LEVOTHYROXINE [Concomitant]
     Dosage: 100 MUG, UNK
  6. ZANTAC 75 DISSOLVE [Concomitant]
     Dosage: UNK
  7. LOSARTAN POTASSIUM [Concomitant]
     Dosage: 50 MG, UNK
  8. FISH OIL [Concomitant]
     Dosage: UNK

REACTIONS (1)
  - Rash erythematous [Recovering/Resolving]
